FAERS Safety Report 9903769 (Version 1)
Quarter: 2014Q1

REPORT INFORMATION
  Report Type: Spontaneous
  Country: US (occurrence: US)
  Receive Date: 20140218
  Receipt Date: 20140218
  Transmission Date: 20141002
  Serious: Yes (Other)
  Sender: FDA-Public Use
  Company Number: US-ROCHE-1349727

PATIENT
  Age: 51 Year
  Sex: Male

DRUGS (7)
  1. TAMIFLU [Suspect]
     Indication: H1N1 INFLUENZA
     Route: 048
     Dates: start: 20140206, end: 20140210
  2. PRILOSEC [Concomitant]
     Indication: GASTROOESOPHAGEAL REFLUX DISEASE
     Route: 048
  3. PAXIL [Concomitant]
     Indication: GENERALISED ANXIETY DISORDER
     Route: 048
  4. DEPAKOTE [Concomitant]
     Route: 048
  5. NAMENDA [Concomitant]
     Indication: DEMENTIA ALZHEIMER^S TYPE
     Route: 048
  6. MONTELUKAST [Concomitant]
     Indication: HYPERSENSITIVITY
     Route: 048
  7. LITHIUM CARBONATE [Concomitant]
     Route: 048

REACTIONS (2)
  - Hallucination [Not Recovered/Not Resolved]
  - Confusional state [Unknown]
